FAERS Safety Report 18980244 (Version 1)
Quarter: 2021Q1

REPORT INFORMATION
  Report Type: Spontaneous
  Country: US (occurrence: US)
  Receive Date: 20210305
  Receipt Date: 20210305
  Transmission Date: 20210420
  Serious: Yes (Hospitalization, Other)
  Sender: FDA-Public Use
  Company Number: None

PATIENT
  Age: 73 Year
  Sex: Male

DRUGS (6)
  1. COSENTYX [Suspect]
     Active Substance: SECUKINUMAB
     Indication: PSORIASIS
     Route: 058
     Dates: start: 20170617
  2. CLOPIDOGREL [Concomitant]
     Active Substance: CLOPIDOGREL BISULFATE
  3. GABAPENTIN. [Concomitant]
     Active Substance: GABAPENTIN
  4. PRIMIDONE. [Concomitant]
     Active Substance: PRIMIDONE
  5. PRAVASTATIN. [Concomitant]
     Active Substance: PRAVASTATIN
  6. VALSART/HCTZ [Concomitant]
     Active Substance: HYDROCHLOROTHIAZIDE\VALSARTAN

REACTIONS (6)
  - Neoplasm malignant [None]
  - Product dose omission issue [None]
  - Incorrect route of product administration [None]
  - Condition aggravated [None]
  - Pneumonia [None]
  - Device issue [None]

NARRATIVE: CASE EVENT DATE: 20210111
